FAERS Safety Report 9906219 (Version 3)
Quarter: 2014Q1

REPORT INFORMATION
  Report Type: Spontaneous
  Country: US (occurrence: US)
  Receive Date: 20140218
  Receipt Date: 20140310
  Transmission Date: 20141002
  Serious: Yes (Hospitalization)
  Sender: FDA-Public Use
  Company Number: US-B.I. PHARMACEUTICALS,INC./RIDGEFIELD-2014-BI-06163BP

PATIENT
  Age: 58 Year
  Sex: Female
  Weight: 78 kg

DRUGS (19)
  1. PRADAXA [Suspect]
     Indication: ATRIAL FIBRILLATION
     Dosage: 300 MG
     Route: 048
     Dates: start: 20110823, end: 201306
  2. PRADAXA [Suspect]
     Dosage: 300 MG
     Route: 048
     Dates: start: 201306
  3. BENICAR HCT [Concomitant]
     Dosage: STRENGTH: 40 MG/12.5; DALIY DOSE: 40 MG/12.5
     Route: 048
  4. TECFIDERA [Concomitant]
     Indication: MULTIPLE SCLEROSIS
     Dosage: 480 MG
     Route: 048
  5. FLECINAIDE [Concomitant]
     Indication: ARRHYTHMIA
     Dosage: 2 ANZ
     Route: 048
  6. DILTIAZEM ER [Concomitant]
     Indication: HEART RATE
     Dosage: 240 MG
     Route: 048
     Dates: start: 20130910
  7. DEXILANT [Concomitant]
     Dosage: 120 MG
     Route: 048
  8. FLECAINIDE ACETATE [Concomitant]
     Dosage: 100 MG
     Route: 048
  9. FUROSEMIDE [Concomitant]
     Dosage: 20 MG
     Route: 048
     Dates: start: 20080902
  10. HYDROCOD POLST-CPM POLSY ER [Concomitant]
     Dosage: FORMULATION: LIQUID EXTENDED RELEASE; DOSE PER APPLICATION: 10-8MG/5ML; DAILY DOSE: 1 TEASPOONFUL
     Route: 048
     Dates: start: 20110517
  11. HYDROCODONE -ACETAMINOPHEN [Concomitant]
     Indication: PAIN
     Dosage: DOSE PER APPLICATION: 5-325 MG; DAILY DOSE: 1 TO 2 TABLETS
     Route: 048
     Dates: start: 20131213
  12. LIDODERM [Concomitant]
     Dosage: FORMULATION: EXTERNAL PATCH; DOSE PER APPLICATION:5%; DAILY DOSE: 1-2 PATCH
     Route: 065
     Dates: start: 20130211
  13. METAXALONE [Concomitant]
     Dosage: 1 ANZ
     Route: 048
     Dates: start: 20100416
  14. IMMUNOTHERAPY [Concomitant]
     Route: 065
  15. PATADAY [Concomitant]
     Dosage: FORMULATION: OPTHALMIC SOLUTION; DOSE PER APLLICATION: 0.2%; DAILY DOSE:  INSTILL 1 DROP INTO AFFECT
     Route: 065
     Dates: start: 20080902
  16. PATANASE [Concomitant]
     Dosage: FORMLUATION: NASAL SOLUTION;DOSE PER APPLICATION: 0.6%; DAILY DOSE: 1 SQUIRT EACH NOSTRIL
     Route: 065
     Dates: start: 20080902
  17. POTASSIUM CHLORIDE ER [Concomitant]
     Dosage: 10 MEQ
     Route: 048
     Dates: start: 20080902
  18. RECLAST [Concomitant]
     Dosage: FORMULATION: INTRAVENOUS SOLUTION; DOSE PER APPLICATION: 5MG/100ML;
     Route: 017
     Dates: start: 20101122
  19. VIACTIV CHEW [Concomitant]
     Route: 065

REACTIONS (1)
  - Oesophagogastric fundoplasty [Recovered/Resolved]
